FAERS Safety Report 9156744 (Version 1)
Quarter: 2013Q1

REPORT INFORMATION
  Report Type: Spontaneous
  Country: US (occurrence: None)
  Receive Date: 20130307
  Receipt Date: 20130307
  Transmission Date: 20140127
  Serious: No
  Sender: FDA-Public Use
  Company Number: None

PATIENT
  Age: 58 Year
  Sex: Female

DRUGS (2)
  1. PEGASYS PFS 180MCG ABBOTT [Suspect]
     Indication: HEPATITIS
     Dates: start: 20130201
  2. RIBAVIRIN [Suspect]
     Indication: HEPATITIS
     Dosage: RIBAVIRIN 200MG TAB PO 2QAM + 3 QPM
     Route: 048
     Dates: start: 20130201

REACTIONS (2)
  - Headache [None]
  - Blood pressure increased [None]
